FAERS Safety Report 9049723 (Version 2)
Quarter: 2013Q1

REPORT INFORMATION
  Report Type: Spontaneous
  Country: JP (occurrence: JP)
  Receive Date: 20130205
  Receipt Date: 20130218
  Transmission Date: 20140127
  Serious: Yes (Death)
  Sender: FDA-Public Use
  Company Number: JP-009507513-1302JPN001278

PATIENT
  Age: 40 Year
  Sex: Female

DRUGS (1)
  1. NU-LOTAN TABLETS 50MG [Suspect]
     Indication: HYPERTENSION
     Dosage: 50 MG, QD
     Route: 048
     Dates: start: 201301, end: 201301

REACTIONS (1)
  - Sudden death [Fatal]
